FAERS Safety Report 7780882-6 (Version None)
Quarter: 2011Q3

REPORT INFORMATION
  Report Type: 
  Country: None (occurrence: None)
  Receive Date: 20110927
  Receipt Date: 20110920
  Transmission Date: 20111222
  Serious: Yes (Hospitalization)
  Sender: FDA-Public Use
  Company Number: US-PFIZER INC-2011208762

PATIENT
  Sex: Female

DRUGS (22)
  1. TOVIAZ [Concomitant]
     Dosage: 8 MG, DAILY
     Route: 048
     Dates: start: 20110608
  2. VESICARE [Concomitant]
     Dosage: 10MG, DAILY
     Route: 048
     Dates: start: 20110209
  3. VERAMYST [Concomitant]
     Dosage: 2 SP EN DAILY
     Dates: start: 20100330
  4. CELEBREX [Suspect]
     Indication: PAIN
     Dosage: 200 MG, DAILY AS NEEDED AFTER MEALS
     Route: 048
     Dates: start: 20091119
  5. BONIVA [Concomitant]
     Dosage: 150 MG, EACH MONTH
     Route: 048
     Dates: start: 20090902
  6. VESICARE [Concomitant]
     Dosage: 5 MG, UNK
     Dates: start: 20100727, end: 20101210
  7. DOXYCYCLINE [Concomitant]
     Dosage: UNK
     Dates: start: 20101109
  8. VERAMYST [Concomitant]
     Dosage: 2 SP EN DAILY
     Dates: start: 20090615
  9. OMEPRAZOLE [Concomitant]
     Indication: GASTROOESOPHAGEAL REFLUX DISEASE
     Dosage: 20 MG, DAILY
     Route: 048
     Dates: start: 20090615
  10. ISOSORBIDE MONONITRATE [Concomitant]
     Dosage: 60 MG, DAILY
     Route: 048
     Dates: start: 20091119
  11. VERAMYST [Concomitant]
     Dosage: 2 SP EN DAILY
     Dates: start: 20101110
  12. CLINDAMYCIN [Concomitant]
     Dosage: 150MG 4 CAPSULES
     Dates: start: 20110518
  13. CIPROFLOXACIN [Concomitant]
     Dosage: 250 1 TWICE A DAY FOR THREE DAYS
     Dates: start: 20100624, end: 20101014
  14. CIPROFLOXACIN [Concomitant]
     Dosage: 250 1 TWICE A DAY FOR SEVEN DAYS
     Dates: start: 20100901, end: 20110223
  15. ATENOLOL [Concomitant]
     Dosage: 25 MG, DAILY
     Route: 048
     Dates: start: 20110822
  16. DARIFENACIN [Concomitant]
     Dosage: 15 MG, 1X/DAY
     Dates: start: 20090902, end: 20100609
  17. PREMARIN [Concomitant]
     Dosage: UNK
     Dates: start: 20101109
  18. PANTOPRAZOLE [Concomitant]
     Dosage: 40 MG, DAILY
     Route: 048
     Dates: start: 20110820
  19. MEDROL [Concomitant]
     Dosage: UNK
     Dates: start: 20101109
  20. CELEBREX [Suspect]
     Indication: ARTHRITIS
  21. CADUET [Concomitant]
     Dosage: 5/10 MG,  DAILY
     Route: 048
     Dates: start: 20090627
  22. DORZOLAMIDE HYDROCHLORIDE AND TIMOLOL MALEATE [Concomitant]
     Dosage: 1 GTT, BOTH EYES DAILY
     Route: 047
     Dates: start: 20090218

REACTIONS (1)
  - GASTROINTESTINAL HAEMORRHAGE [None]
